FAERS Safety Report 5713029-8 (Version None)
Quarter: 2008Q2

REPORT INFORMATION
  Report Type: 
  Country: None (occurrence: None)
  Receive Date: 20080422
  Receipt Date: 20080414
  Transmission Date: 20081010
  Serious: Yes (Other)
  Sender: FDA-Public Use
  Company Number: IT-ASTRAZENECA-2008SE01957

PATIENT
  Age: 23555 Day
  Sex: Male

DRUGS (2)
  1. CASODEX [Suspect]
     Route: 048
     Dates: start: 20061003, end: 20070306
  2. CASODEX [Suspect]
     Route: 048
     Dates: start: 20071003

REACTIONS (1)
  - DERMATITIS ATOPIC [None]
